FAERS Safety Report 6779610-2 (Version None)
Quarter: 2010Q2

REPORT INFORMATION
  Report Type: 
  Country: None (occurrence: None)
  Receive Date: 20100618
  Receipt Date: 20100611
  Transmission Date: 20101027
  Serious: Yes (Other)
  Sender: FDA-Public Use
  Company Number: A0865913A

PATIENT
  Age: 1 Year
  Sex: Male

DRUGS (1)
  1. CEFUROXIME [Suspect]
     Indication: PNEUMONIA
     Dosage: 2ML TWICE PER DAY
     Route: 048
     Dates: start: 20100610

REACTIONS (2)
  - BACTERAEMIA [None]
  - HYPOTHERMIA [None]
